FAERS Safety Report 8539224-0 (Version None)
Quarter: 2012Q3

REPORT INFORMATION
  Report Type: 
  Country: None (occurrence: None)
  Receive Date: 20120726
  Receipt Date: 20120720
  Transmission Date: 20120928
  Serious: Yes (Other)
  Sender: FDA-Public Use
  Company Number: US-PFIZER INC-2012176564

PATIENT
  Sex: Male
  Weight: 87.982 kg

DRUGS (5)
  1. CALCIUM CARBONATE [Concomitant]
     Dosage: UNK
  2. VIAGRA [Suspect]
     Indication: ERECTILE DYSFUNCTION
     Dosage: UNK
     Dates: start: 19980101
  3. VIAGRA [Suspect]
     Dosage: 50 MG, AS NEEDED
  4. MELATONIN [Concomitant]
     Indication: SLEEP APNOEA SYNDROME
     Dosage: 6 MG, DAILY
     Route: 048
  5. FISH OIL [Concomitant]
     Indication: ROUTINE HEALTH MAINTENANCE
     Dosage: 1000 MG, DAILY

REACTIONS (5)
  - HEARING IMPAIRED [None]
  - SCIATICA [None]
  - INTERVERTEBRAL DISC DEGENERATION [None]
  - SPINAL OSTEOARTHRITIS [None]
  - NERVE COMPRESSION [None]
